FAERS Safety Report 4401603-0 (Version None)
Quarter: 2004Q3

REPORT INFORMATION
  Report Type: 
  Country: None (occurrence: None)
  Receive Date: 20040719
  Receipt Date: 20040713
  Transmission Date: 20050211
  Serious: Yes (Other)
  Sender: FDA-Public Use
  Company Number: BW-BRISTOL-MYERS SQUIBB COMPANY-12639308

PATIENT
  Age: 37 Year
  Sex: Female

DRUGS (2)
  1. EFAVIRENZ [Suspect]
     Indication: HIV INFECTION
     Dates: start: 20040414
  2. COMBIVIR [Suspect]
     Indication: HIV INFECTION
     Dates: start: 20040414

REACTIONS (1)
  - NEUTROPENIA [None]
